FAERS Safety Report 14032724 (Version 2)
Quarter: 2018Q4

REPORT INFORMATION
  Report Type: Report from Study
  Country: BR (occurrence: BR)
  Receive Date: 20171003
  Receipt Date: 20181120
  Transmission Date: 20190204
  Serious: Yes (Other)
  Sender: FDA-Public Use
  Company Number: BR-BRISTOL-MYERS SQUIBB COMPANY-BMS-2017-035392

PATIENT
  Age: 68 Year
  Sex: Female

DRUGS (4)
  1. ABATACEPT [Suspect]
     Active Substance: ABATACEPT
     Indication: RHEUMATOID ARTHRITIS
     Dosage: 750 MG, QMO
     Route: 042
     Dates: start: 2016
  2. SIMVASTATIN. [Concomitant]
     Active Substance: SIMVASTATIN
     Indication: PRODUCT USED FOR UNKNOWN INDICATION
     Dosage: UNK
     Route: 065
  3. ABATACEPT [Suspect]
     Active Substance: ABATACEPT
     Indication: PRODUCT USED FOR UNKNOWN INDICATION
     Dosage: 750 MG, QMO
     Route: 042
  4. PROPANOLOL                         /00030001/ [Concomitant]
     Active Substance: PROPRANOLOL HYDROCHLORIDE
     Indication: PRODUCT USED FOR UNKNOWN INDICATION
     Dosage: UNK
     Route: 065

REACTIONS (14)
  - Blood cholesterol abnormal [Unknown]
  - Arthralgia [Unknown]
  - Nausea [Unknown]
  - Faeces discoloured [Recovering/Resolving]
  - Hypersensitivity [Recovering/Resolving]
  - Malaise [Recovering/Resolving]
  - Gastrointestinal pain [Recovering/Resolving]
  - Limb discomfort [Unknown]
  - Weight increased [Unknown]
  - Pruritus [Recovering/Resolving]
  - Headache [Recovering/Resolving]
  - Rheumatoid arthritis [Recovering/Resolving]
  - Abdominal pain [Recovering/Resolving]
  - Dry skin [Recovering/Resolving]

NARRATIVE: CASE EVENT DATE: 2016
